FAERS Safety Report 12281838 (Version 1)
Quarter: 2016Q2

REPORT INFORMATION
  Report Type: Spontaneous
  Country: ZA (occurrence: ZA)
  Receive Date: 20160419
  Receipt Date: 20160419
  Transmission Date: 20160815
  Serious: Yes (Hospitalization)
  Sender: FDA-Public Use
  Company Number: ZA-PFIZER INC-2016215384

PATIENT
  Age: 79 Year
  Sex: Female

DRUGS (3)
  1. AUSTELL ZOPICLONE [Concomitant]
     Indication: SEDATIVE THERAPY
     Dosage: 7.5 MG, 1X/DAY
     Route: 048
     Dates: start: 20160118, end: 20160215
  2. PREMARIN [Suspect]
     Active Substance: ESTROGENS, CONJUGATED
     Indication: BLOOD OESTROGEN DECREASED
     Dosage: 0.625 MG, 1X/DAY
     Route: 048
     Dates: start: 20130422, end: 20160216
  3. ASPAVOR [Suspect]
     Active Substance: ATORVASTATIN
     Indication: BLOOD CHOLESTEROL ABNORMAL
     Dosage: 20 MG, 1X/DAY
     Route: 048
     Dates: start: 20130516, end: 20160118

REACTIONS (4)
  - Nausea [Unknown]
  - Candida infection [Not Recovered/Not Resolved]
  - Throat lesion [Not Recovered/Not Resolved]
  - Gastric mucosal lesion [Not Recovered/Not Resolved]

NARRATIVE: CASE EVENT DATE: 201512
